FAERS Safety Report 6077118-3 (Version None)
Quarter: 2009Q1

REPORT INFORMATION
  Report Type: 
  Country: None (occurrence: None)
  Receive Date: 20090213
  Receipt Date: 20090210
  Transmission Date: 20090719
  Serious: Yes (Death)
  Sender: FDA-Public Use
  Company Number: FR-CELGENEUS-056-21880-09020578

PATIENT
  Sex: Female

DRUGS (3)
  1. REVLIMID [Suspect]
     Route: 048
     Dates: start: 20080819, end: 20080822
  2. ALKERAN [Suspect]
     Route: 048
     Dates: start: 20080819, end: 20080822
  3. DEXAMETHASONE TAB [Suspect]
     Route: 065
     Dates: start: 20080819, end: 20080822

REACTIONS (1)
  - RESPIRATORY FAILURE [None]
